FAERS Safety Report 7828582-8 (Version None)
Quarter: 2011Q4

REPORT INFORMATION
  Report Type: 
  Country: None (occurrence: None)
  Receive Date: 20111020
  Receipt Date: 20111020
  Transmission Date: 20120403
  Serious: No
  Sender: FDA-Public Use
  Company Number: None

PATIENT
  Age: 42 Year
  Sex: Male
  Weight: 113.39 kg

DRUGS (2)
  1. CYMBALTA [Suspect]
     Indication: ANXIETY
     Dosage: ONE PILL
     Route: 048
     Dates: start: 20070101, end: 20110420
  2. CYMBALTA [Suspect]
     Indication: DEPRESSION
     Dosage: ONE PILL
     Route: 048
     Dates: start: 20070101, end: 20110420

REACTIONS (11)
  - HEADACHE [None]
  - DRUG WITHDRAWAL SYNDROME [None]
  - PARAESTHESIA [None]
  - ANXIETY [None]
  - BALANCE DISORDER [None]
  - PRURITUS [None]
  - BURNING SENSATION [None]
  - HYPERHIDROSIS [None]
  - DIZZINESS [None]
  - TINNITUS [None]
  - VOMITING [None]
